FAERS Safety Report 9677757 (Version 1)
Quarter: 2013Q4

REPORT INFORMATION
  Report Type: Spontaneous
  Country: RS (occurrence: RS)
  Receive Date: 20131108
  Receipt Date: 20131108
  Transmission Date: 20140711
  Serious: Yes (Hospitalization)
  Sender: FDA-Public Use
  Company Number: RS-JNJFOC-20131102886

PATIENT
  Sex: Male

DRUGS (5)
  1. XARELTO [Suspect]
     Indication: PRODUCT USED FOR UNKNOWN INDICATION
     Route: 065
  2. PROPAFENONE [Concomitant]
     Route: 065
  3. AMIODARON [Concomitant]
     Route: 065
  4. VISIREN [Concomitant]
     Route: 065
  5. OMEPRAZOLE [Concomitant]
     Route: 065

REACTIONS (2)
  - Haematoma [Recovering/Resolving]
  - Fall [Unknown]
